FAERS Safety Report 22619470 (Version 1)
Quarter: 2023Q2

REPORT INFORMATION
  Report Type: Other
  Country: TR (occurrence: TR)
  Receive Date: 20230620
  Receipt Date: 20230620
  Transmission Date: 20230721
  Serious: Yes (Other)
  Sender: FDA-Public Use
  Company Number: TR-BoehringerIngelheim-2023-BI-244003

PATIENT
  Age: 78 Year
  Sex: Female

DRUGS (2)
  1. ALTEPLASE [Suspect]
     Active Substance: ALTEPLASE
     Indication: Retinal haemorrhage
     Route: 050
  2. SULFUR HEXAFLUORIDE [Concomitant]
     Active Substance: SULFUR HEXAFLUORIDE
     Indication: Retinal haemorrhage
     Route: 050

REACTIONS (2)
  - Drug ineffective [Unknown]
  - Vitreous haemorrhage [Unknown]
